FAERS Safety Report 9426608 (Version 1)
Quarter: 2013Q3

REPORT INFORMATION
  Report Type: Spontaneous
  Country: US (occurrence: None)
  Receive Date: 20130729
  Receipt Date: 20130729
  Transmission Date: 20140515
  Serious: Yes (Life-Threatening, Hospitalization)
  Sender: FDA-Public Use
  Company Number: None

PATIENT
  Age: 33 Year
  Sex: Female
  Weight: 60.33 kg

DRUGS (11)
  1. LUTERA [Suspect]
     Indication: CONTRACEPTION
     Dates: start: 20111215, end: 20131102
  2. COUMADIN [Concomitant]
  3. XANAX [Concomitant]
  4. 5HTP [Concomitant]
  5. MULTIVITAMIN [Concomitant]
  6. CALCIUM WITH VITAMIN D [Concomitant]
  7. FISH OIL [Concomitant]
  8. FLAVONEX [Concomitant]
  9. VITAMIN E [Concomitant]
  10. FISH OILS [Concomitant]
  11. MULTIVITAMIN [Concomitant]

REACTIONS (1)
  - Pulmonary embolism [None]
